FAERS Safety Report 5531883-X (Version None)
Quarter: 2007Q4

REPORT INFORMATION
  Report Type: 
  Country: None (occurrence: None)
  Receive Date: 20071119
  Receipt Date: 20070807
  Transmission Date: 20080405
  Serious: No
  Sender: FDA-Public Use
  Company Number: TPA2007A01666

PATIENT
  Age: 49 Year
  Sex: Female

DRUGS (4)
  1. ROZEREM [Suspect]
     Dosage: 8 MG, HS, PER ORAL
     Route: 048
  2. SARAFEM (FLUOXETINE) [Concomitant]
  3. FLONASE [Concomitant]
  4. ALLEGRA (FEXOFENADINE HYDROCHLORIDE) [Concomitant]

REACTIONS (1)
  - ANXIETY [None]
